FAERS Safety Report 4526587-6 (Version None)
Quarter: 2004Q4

REPORT INFORMATION
  Report Type: 
  Country: None (occurrence: None)
  Receive Date: 20041210
  Receipt Date: 20041124
  Transmission Date: 20050328
  Serious: Yes (Other)
  Sender: FDA-Public Use
  Company Number: 2004102133

PATIENT
  Sex: Male

DRUGS (4)
  1. ARTHROTEC [Suspect]
     Indication: ILL-DEFINED DISORDER
     Dosage: ORAL
     Route: 048
     Dates: end: 20041123
  2. CELEBREX [Suspect]
     Indication: ILL-DEFINED DISORDER
  3. THIOCOLCHICOSIDE (THIOCOLCHICOSIDE) [Concomitant]
  4. ACETAMINOPHEN [Concomitant]

REACTIONS (3)
  - MEDICATION ERROR [None]
  - RECTAL HAEMORRHAGE [None]
  - TREATMENT NONCOMPLIANCE [None]
